FAERS Safety Report 7129745-X (Version None)
Quarter: 2010Q4

REPORT INFORMATION
  Report Type: 
  Country: None (occurrence: None)
  Receive Date: 20101130
  Receipt Date: 20101119
  Transmission Date: 20110411
  Serious: Yes (Other)
  Sender: FDA-Public Use
  Company Number: CH-PFIZER INC-2010153005

PATIENT
  Age: 39 Year
  Sex: Male

DRUGS (1)
  1. EFFEXOR [Suspect]

REACTIONS (4)
  - DELIRIUM TREMENS [None]
  - DEPRESSION [None]
  - ELECTROLYTE DEPLETION [None]
  - INAPPROPRIATE ANTIDIURETIC HORMONE SECRETION [None]
